FAERS Safety Report 10355472 (Version 2)
Quarter: 2014Q3

REPORT INFORMATION
  Report Type: Spontaneous
  Country: US (occurrence: US)
  Receive Date: 20140731
  Receipt Date: 20140905
  Transmission Date: 20150326
  Serious: Yes (Hospitalization, Other)
  Sender: FDA-Public Use
  Company Number: US-MALLINCKRODT-T201402941

PATIENT
  Age: 71 Year
  Sex: Male

DRUGS (22)
  1. METHADONE [Suspect]
     Active Substance: METHADONE HYDROCHLORIDE
     Dosage: 10 MG, 3 Q6H
     Route: 048
     Dates: start: 201303
  2. METHADONE [Suspect]
     Active Substance: METHADONE HYDROCHLORIDE
     Dosage: 20 MG Q DAY
     Route: 048
     Dates: start: 201308
  3. METHADONE [Suspect]
     Active Substance: METHADONE HYDROCHLORIDE
     Dosage: 10 MG, 2 Q6H
     Route: 048
     Dates: start: 201310
  4. OPANA [Concomitant]
     Active Substance: OXYMORPHONE HYDROCHLORIDE
     Dosage: 40 MG, ONE Q12HRS
     Route: 048
     Dates: start: 201306
  5. PERCOCET [Concomitant]
     Active Substance: ACETAMINOPHEN\OXYCODONE HYDROCHLORIDE
     Dosage: 10/325 MG, 1 Q8-12HR
     Route: 048
     Dates: start: 20090703
  6. MS CONTIN [Concomitant]
     Active Substance: MORPHINE SULFATE
     Dosage: 30 MG, 1 Q8H
     Route: 048
     Dates: start: 201306, end: 201306
  7. VOLTAREN [Concomitant]
     Active Substance: DICLOFENAC SODIUM
     Dosage: 4 GRAMS, QID
     Route: 061
     Dates: start: 201312
  8. METHADONE [Suspect]
     Active Substance: METHADONE HYDROCHLORIDE
     Dosage: 10 MG, 2 Q6H
     Route: 048
     Dates: end: 201303
  9. PERCOCET [Concomitant]
     Active Substance: ACETAMINOPHEN\OXYCODONE HYDROCHLORIDE
     Dosage: 10/325 MG, 1 Q8-12HR
     Dates: start: 201311
  10. RESTORIL [Concomitant]
     Active Substance: TEMAZEPAM
     Dosage: 15 MG, QHS PRN
     Route: 048
  11. OXYCODONE HCL [Concomitant]
     Active Substance: OXYCODONE HYDROCHLORIDE
     Dosage: 30 MG, 1 Q6 PRN
     Route: 048
  12. VIAGRA [Concomitant]
     Active Substance: SILDENAFIL CITRATE
     Dosage: 100 MG, 1 BEFORE INTERCOURSE
     Route: 048
     Dates: start: 201304, end: 201305
  13. MS CONTIN [Concomitant]
     Active Substance: MORPHINE SULFATE
     Dosage: 30 MG, 1 Q12H
     Route: 048
     Dates: start: 201310
  14. METHADONE [Suspect]
     Active Substance: METHADONE HYDROCHLORIDE
     Dosage: 10 MG, 4 Q6H, THEN 2 QHS
     Route: 048
     Dates: start: 201308
  15. METHADONE [Suspect]
     Active Substance: METHADONE HYDROCHLORIDE
     Indication: PAIN
     Dosage: 10 MG, 1 Q6H, THEN 2 QHS
     Route: 048
  16. CIALIS [Concomitant]
     Active Substance: TADALAFIL
     Dosage: 5 MG, 1 Q DAY PRN
     Route: 048
     Dates: start: 201305
  17. MS CONTIN [Concomitant]
     Active Substance: MORPHINE SULFATE
     Dosage: 30 MG, 1 Q8H
     Route: 048
     Dates: start: 201307
  18. METHADONE [Suspect]
     Active Substance: METHADONE HYDROCHLORIDE
     Dosage: 10 MG; 6  Q6H
     Route: 048
     Dates: start: 201304, end: 201305
  19. METHADONE [Suspect]
     Active Substance: METHADONE HYDROCHLORIDE
     Dosage: 10 MG, 3 Q6H
     Route: 048
     Dates: start: 201305, end: 2013
  20. LORTAB [Concomitant]
     Active Substance: ACETAMINOPHEN\HYDROCODONE BITARTRATE
     Dosage: 10/500MG, 1 Q8-12 HR
     Route: 048
     Dates: end: 20090703
  21. AMBIEN [Concomitant]
     Active Substance: ZOLPIDEM TARTRATE
     Dosage: 10 MG, QHS
     Dates: start: 2009
  22. CALCIUM + VITAMIN D [Concomitant]
     Active Substance: CALCIUM\VITAMIN D
     Dosage: 600-200 MG, 1 QD
     Route: 048

REACTIONS (21)
  - Gait disturbance [Unknown]
  - Visual impairment [Unknown]
  - Myocardial infarction [Unknown]
  - Insomnia [Unknown]
  - Dyspnoea [Unknown]
  - Myofascial pain syndrome [Unknown]
  - Wheezing [Unknown]
  - Malaise [Unknown]
  - Anxiety [Unknown]
  - Weight decreased [Unknown]
  - Temperature intolerance [Unknown]
  - Muscular weakness [Unknown]
  - Spinal fracture [Recovering/Resolving]
  - Drug withdrawal syndrome [Recovered/Resolved]
  - Electrocardiogram QT prolonged [Unknown]
  - Hip fracture [Unknown]
  - Seasonal allergy [Unknown]
  - Arthralgia [Unknown]
  - Compression fracture [Unknown]
  - Hypotension [Unknown]
  - Tinnitus [Unknown]

NARRATIVE: CASE EVENT DATE: 2009
